FAERS Safety Report 8485373-5 (Version None)
Quarter: 2012Q3

REPORT INFORMATION
  Report Type: 
  Country: None (occurrence: None)
  Receive Date: 20120703
  Receipt Date: 20120621
  Transmission Date: 20120928
  Serious: Yes (Hospitalization, Other)
  Sender: FDA-Public Use
  Company Number: IN-MYLANLABS-2012S1012920

PATIENT
  Age: 37 Year
  Sex: Female

DRUGS (1)
  1. PHENYTOIN [Suspect]
     Indication: CONVULSION
     Route: 048

REACTIONS (2)
  - POST INFLAMMATORY PIGMENTATION CHANGE [None]
  - STEVENS-JOHNSON SYNDROME [None]
